FAERS Safety Report 5738679-4 (Version None)
Quarter: 2008Q2

REPORT INFORMATION
  Report Type: 
  Country: None (occurrence: None)
  Receive Date: 20080515
  Receipt Date: 20080505
  Transmission Date: 20081010
  Serious: Yes (Other)
  Sender: FDA-Public Use
  Company Number: IT-NOVOPROD-275200

PATIENT
  Sex: Female

DRUGS (2)
  1. NOVORAPID [Suspect]
     Indication: DIABETES MELLITUS
     Dosage: 10 IU, QD
     Dates: start: 20080101, end: 20080414
  2. NOVOLOG MIX 70/30 [Suspect]
     Indication: DIABETES MELLITUS
     Dosage: 22 IU, QD
     Dates: start: 20080101, end: 20080414

REACTIONS (1)
  - ALTERED STATE OF CONSCIOUSNESS [None]
